FAERS Safety Report 25828471 (Version 2)
Quarter: 2025Q3

REPORT INFORMATION
  Report Type: Spontaneous
  Country: US (occurrence: US)
  Receive Date: 20250922
  Receipt Date: 20250926
  Transmission Date: 20251020
  Serious: No
  Sender: AMGEN
  Company Number: US-AMGEN-USASP2025186877

PATIENT
  Age: 75 Year
  Sex: Female

DRUGS (20)
  1. OTEZLA [Suspect]
     Active Substance: APREMILAST
     Indication: Psoriasis
     Dosage: 30 MILLIGRAM, BID
     Route: 048
     Dates: start: 20250624, end: 202508
  2. ACETAMINOPHEN [Concomitant]
     Active Substance: ACETAMINOPHEN
  3. AMOXICILLIN [Concomitant]
     Active Substance: AMOXICILLIN
  4. ATORVASTATIN [Concomitant]
     Active Substance: ATORVASTATIN
  5. BUSPIRONE [Concomitant]
     Active Substance: BUSPIRONE HYDROCHLORIDE
  6. Clobetasol propion [Concomitant]
  7. DULOXETINE [Concomitant]
     Active Substance: DULOXETINE
  8. DUPIXENT [Concomitant]
     Active Substance: DUPILUMAB
  9. FLUTICASONE [Concomitant]
     Active Substance: FLUTICASONE
  10. IBUPROFEN [Concomitant]
     Active Substance: IBUPROFEN
  11. LEVOTHYROXINE [Concomitant]
     Active Substance: LEVOTHYROXINE
  12. LORAZEPAM [Concomitant]
     Active Substance: LORAZEPAM
  13. Methocarbamol al [Concomitant]
  14. MONTELUKAST [Concomitant]
     Active Substance: MONTELUKAST
  15. NORCO [Concomitant]
     Active Substance: ACETAMINOPHEN\HYDROCODONE BITARTRATE
  16. OLOPATADINE [Concomitant]
     Active Substance: OLOPATADINE
  17. PRIMIDONE [Concomitant]
     Active Substance: PRIMIDONE
  18. PROPRANOLOL [Concomitant]
     Active Substance: PROPRANOLOL HYDROCHLORIDE
  19. TRAZODONE [Concomitant]
     Active Substance: TRAZODONE HYDROCHLORIDE
  20. XIIDRA [Concomitant]
     Active Substance: LIFITEGRAST

REACTIONS (3)
  - Abdominal discomfort [Unknown]
  - Diarrhoea [Recovered/Resolved]
  - Nausea [Recovered/Resolved]

NARRATIVE: CASE EVENT DATE: 20250101
